FAERS Safety Report 10295143 (Version 1)
Quarter: 2014Q3

REPORT INFORMATION
  Report Type: Spontaneous
  Country: US (occurrence: US)
  Receive Date: 20140710
  Receipt Date: 20140710
  Transmission Date: 20150326
  Serious: No
  Sender: FDA-Public Use
  Company Number: US-009507513-1407USA003177

PATIENT
  Sex: Male

DRUGS (1)
  1. PROPECIA [Suspect]
     Active Substance: FINASTERIDE
     Route: 048

REACTIONS (6)
  - Fatigue [Unknown]
  - Libido decreased [Unknown]
  - Erectile dysfunction [Unknown]
  - Blood testosterone decreased [Unknown]
  - Anxiety [Unknown]
  - Depression [Unknown]
